FAERS Safety Report 9929334 (Version 1)
Quarter: 2014Q1

REPORT INFORMATION
  Report Type: Spontaneous
  Country: BR (occurrence: BR)
  Receive Date: 20140227
  Receipt Date: 20140227
  Transmission Date: 20141002
  Serious: Yes (Death)
  Sender: FDA-Public Use
  Company Number: BR-SA-2014SA023218

PATIENT
  Sex: Male

DRUGS (4)
  1. LANTUS [Suspect]
     Indication: DIABETES MELLITUS
     Route: 058
  2. NOVORAPID [Concomitant]
     Indication: DIABETES MELLITUS
     Dosage: DOSE: AS PER GLYCEMIC LEVELS
  3. NATRIX [Concomitant]
     Indication: HYPERTENSION
     Route: 048
  4. DEVICE NOS [Concomitant]
     Indication: DEVICE THERAPY

REACTIONS (1)
  - Cerebrovascular accident [Fatal]
